FAERS Safety Report 16662118 (Version 1)
Quarter: 2019Q3

REPORT INFORMATION
  Report Type: Spontaneous
  Country: BR (occurrence: BR)
  Receive Date: 20190802
  Receipt Date: 20190802
  Transmission Date: 20191004
  Serious: Yes (Other)
  Sender: FDA-Public Use
  Company Number: PHHY2019BR178911

PATIENT
  Age: 6 Year
  Sex: Female

DRUGS (8)
  1. METHOTREXATE. [Suspect]
     Active Substance: METHOTREXATE
     Indication: PRECURSOR B-LYMPHOBLASTIC LYMPHOMA
     Dosage: UNK
     Route: 042
  2. CYCLOPHOSPHAMIDE. [Concomitant]
     Active Substance: CYCLOPHOSPHAMIDE
     Indication: PRECURSOR B-LYMPHOBLASTIC LYMPHOMA
     Route: 065
  3. METHOTREXATE. [Suspect]
     Active Substance: METHOTREXATE
     Dosage: UNK
     Route: 037
  4. PREDNISONE. [Concomitant]
     Active Substance: PREDNISONE
     Indication: PRECURSOR B-LYMPHOBLASTIC LYMPHOMA
     Route: 065
  5. LEUCOVORIN. [Concomitant]
     Active Substance: LEUCOVORIN
     Indication: PRECURSOR B-LYMPHOBLASTIC LYMPHOMA
     Route: 065
  6. VINCRISTINE [Concomitant]
     Active Substance: VINCRISTINE
     Indication: PRECURSOR B-LYMPHOBLASTIC LYMPHOMA
     Route: 065
  7. CYTOSINE ARABINOSIDE [Concomitant]
     Active Substance: CYTARABINE
     Indication: PRECURSOR B-LYMPHOBLASTIC LYMPHOMA
     Route: 065
  8. TENIPOSIDE. [Concomitant]
     Active Substance: TENIPOSIDE
     Indication: PRECURSOR B-LYMPHOBLASTIC LYMPHOMA
     Route: 065

REACTIONS (6)
  - Dysphagia [Unknown]
  - Musculoskeletal stiffness [Unknown]
  - Coma [Unknown]
  - Facial paralysis [Unknown]
  - Hemiparesis [Unknown]
  - Encephalopathy [Unknown]
